FAERS Safety Report 23838124 (Version 1)
Quarter: 2024Q2

REPORT INFORMATION
  Report Type: Spontaneous
  Country: US (occurrence: None)
  Receive Date: 20240508
  Receipt Date: 20240508
  Transmission Date: 20240716
  Serious: No
  Sender: FDA-Public Use
  Company Number: None

PATIENT
  Age: 37 Year
  Sex: Male

DRUGS (1)
  1. TALTZ [Suspect]
     Active Substance: IXEKIZUMAB
     Indication: Psoriasis
     Dosage: INJECT 80MG (1 PEN) SUBCUTANEOUSLY  AT WEEK 12 , THEN EVERY 4 WEEKS AS DIRECTED.   ?
     Route: 058
     Dates: start: 202404

REACTIONS (4)
  - Localised infection [None]
  - Localised infection [None]
  - Condition aggravated [None]
  - Psoriasis [None]
